FAERS Safety Report 10543005 (Version 1)
Quarter: 2014Q4

REPORT INFORMATION
  Report Type: Spontaneous
  Country: IT (occurrence: IT)
  Receive Date: 20141027
  Receipt Date: 20141027
  Transmission Date: 20150529
  Serious: Yes (Other)
  Sender: FDA-Public Use
  Company Number: IT-BAYER-2014-154032

PATIENT
  Age: 10 Year
  Sex: Male

DRUGS (20)
  1. AMOXICILLIN W/CLAVULANIC ACID [Suspect]
     Active Substance: AMOXICILLIN\CLAVULANIC ACID
     Indication: TUBERCULOSIS
     Dosage: 1 G, TID
     Route: 042
     Dates: start: 20131030, end: 20140219
  2. TERIZIDONE [Suspect]
     Active Substance: TERIZIDONE
     Indication: TUBERCULOSIS
     Dosage: 750 MG, QD
     Route: 048
     Dates: start: 20131030, end: 20140219
  3. PARA-AMINOSALICYLIC ACID [Suspect]
     Active Substance: AMINOSALICYLIC ACID
     Indication: TUBERCULOSIS
     Dosage: 6 G, QD
     Dates: start: 20131107, end: 20140219
  4. PARA-AMINOSALICYLIC ACID [Suspect]
     Active Substance: AMINOSALICYLIC ACID
     Indication: TUBERCULOSIS
     Dosage: 8 G QD
     Dates: start: 20140307, end: 20140328
  5. CLOFAZIMINE [Concomitant]
     Active Substance: CLOFAZIMINE
     Indication: TUBERCULOSIS
     Dosage: 100 MG, QD
     Route: 048
     Dates: start: 20140305, end: 20140328
  6. MOXIFLOXACIN ORAL [Suspect]
     Active Substance: MOXIFLOXACIN
     Indication: TUBERCULOSIS
     Dosage: 550 MG, QD
     Route: 048
     Dates: start: 20131004, end: 20140219
  7. ETHIMIDE [Concomitant]
     Indication: TUBERCULOSIS
     Dosage: 750 MG, QD
     Route: 048
     Dates: start: 20140209, end: 20140219
  8. LINEZOLID. [Suspect]
     Active Substance: LINEZOLID
     Indication: TUBERCULOSIS
     Dosage: 300 MG, BID
     Route: 042
     Dates: start: 20140301, end: 20140328
  9. CLOFAZIMINE [Concomitant]
     Active Substance: CLOFAZIMINE
     Indication: TUBERCULOSIS
     Dosage: 200 MG, QD
     Route: 048
     Dates: start: 20140209, end: 20140219
  10. ETHIMIDE [Concomitant]
     Indication: TUBERCULOSIS
     Dosage: 500 MG, QD
     Route: 048
     Dates: start: 20140310, end: 20140328
  11. LINEZOLID. [Suspect]
     Active Substance: LINEZOLID
     Indication: TUBERCULOSIS
     Dosage: 600 MG BID
     Route: 042
     Dates: start: 20131030, end: 20140219
  12. ISONIAZID. [Concomitant]
     Active Substance: ISONIAZID
     Indication: TUBERCULOSIS
     Dosage: 400 MG, BID
     Route: 048
     Dates: start: 20131001, end: 20131030
  13. MEROPENEM. [Concomitant]
     Active Substance: MEROPENEM
     Indication: TUBERCULOSIS
     Dosage: 1 G TID
     Route: 042
     Dates: start: 20140301, end: 20140328
  14. CLARITHROMYCIN. [Suspect]
     Active Substance: CLARITHROMYCIN
     Indication: TUBERCULOSIS
     Dosage: 300 MG, BID
     Route: 048
     Dates: start: 20131030, end: 20140219
  15. MEROPENEM. [Concomitant]
     Active Substance: MEROPENEM
     Indication: TUBERCULOSIS
     Dosage: 1 G, TID
     Route: 042
     Dates: start: 20140209, end: 20140219
  16. ISONIAZID. [Concomitant]
     Active Substance: ISONIAZID
     Indication: TUBERCULOSIS
     Dosage: 400 MG BID
     Route: 048
     Dates: start: 20140202, end: 20140219
  17. ETHAMBUTOL [Concomitant]
     Active Substance: ETHAMBUTOL HYDROCHLORIDE
     Indication: TUBERCULOSIS
     Dosage: 400 MG, BID
     Route: 048
     Dates: start: 20131004, end: 20131030
  18. PYRAZINAMIDE. [Concomitant]
     Active Substance: PYRAZINAMIDE
     Indication: TUBERCULOSIS
     Dosage: 700 MG, BID
     Route: 048
     Dates: start: 20131004, end: 20131030
  19. AMOXICILLIN W/CLAVULANIC ACID [Suspect]
     Active Substance: AMOXICILLIN\CLAVULANIC ACID
     Indication: TUBERCULOSIS
     Dosage: 700 MG, TID
     Route: 042
     Dates: start: 20140301, end: 20140328
  20. AMIKACIN [Concomitant]
     Active Substance: AMIKACIN
     Indication: TUBERCULOSIS
     Dosage: 750 MG, QD
     Route: 042
     Dates: start: 20140209, end: 20140219

REACTIONS (2)
  - Off label use [None]
  - Pancreatic insufficiency [None]

NARRATIVE: CASE EVENT DATE: 20140219
